FAERS Safety Report 7622472-1 (Version None)
Quarter: 2011Q3

REPORT INFORMATION
  Report Type: 
  Country: None (occurrence: None)
  Receive Date: 20110711
  Receipt Date: 20110624
  Transmission Date: 20111222
  Serious: Yes (Life-Threatening)
  Sender: FDA-Public Use
  Company Number: 2011MA008241

PATIENT
  Age: 57 Year
  Sex: Female

DRUGS (3)
  1. ALBUTEROL [Concomitant]
  2. DICLOFENAC SODIUM [Suspect]
  3. BECLOMETHASONE DIPROPIONATE [Concomitant]

REACTIONS (1)
  - ANAPHYLACTIC REACTION [None]
